FAERS Safety Report 16078380 (Version 1)
Quarter: 2019Q2

REPORT INFORMATION
  Report Type: Spontaneous
  Country: US (occurrence: US)
  Receive Date: 20190315
  Receipt Date: 20190315
  Transmission Date: 20190711
  Serious: No
  Sender: FDA-Public Use
  Company Number: None

PATIENT
  Sex: Female

DRUGS (4)
  1. OCALIVA [Suspect]
     Active Substance: OBETICHOLIC ACID
     Indication: PRIMARY BILIARY CHOLANGITIS
     Route: 048
     Dates: start: 20190121
  2. URSODIOL. [Concomitant]
     Active Substance: URSODIOL
  3. VITAMIN A [Concomitant]
     Active Substance: VITAMIN A
  4. VITAMIN D NOS [Concomitant]
     Active Substance: VITAMIN D NOS

REACTIONS (8)
  - Oropharyngeal pain [None]
  - Thirst [None]
  - Peripheral swelling [None]
  - Heart rate increased [None]
  - Fatigue [None]
  - Hypersomnia [None]
  - Pruritus [None]
  - Arthralgia [None]
